FAERS Safety Report 4509579-2 (Version None)
Quarter: 2004Q4

REPORT INFORMATION
  Report Type: 
  Country: None (occurrence: None)
  Receive Date: 20041119
  Receipt Date: 20041115
  Transmission Date: 20050328
  Serious: Yes (Hospitalization)
  Sender: FDA-Public Use
  Company Number: MK200411-0147-1

PATIENT
  Age: 57 Year
  Sex: Male

DRUGS (2)
  1. BAROS [Suspect]
     Indication: X-RAY WITH CONTRAST UPPER GASTROINTESTINAL TRACT
     Dosage: 3 GM, ONCE, PO
     Route: 048
     Dates: start: 20041021, end: 20041021
  2. LIQUID E-Z-PAQUE [Suspect]
     Indication: X-RAY WITH CONTRAST UPPER GASTROINTESTINAL TRACT
     Dosage: ONCE, PO
     Route: 048
     Dates: start: 20041021, end: 20041021

REACTIONS (4)
  - CARDIO-RESPIRATORY ARREST [None]
  - CYANOSIS [None]
  - FOAMING AT MOUTH [None]
  - PNEUMONIA ASPIRATION [None]
